FAERS Safety Report 19789735 (Version 1)
Quarter: 2021Q3

REPORT INFORMATION
  Report Type: Spontaneous
  Country: US (occurrence: US)
  Receive Date: 20210904
  Receipt Date: 20210904
  Transmission Date: 20211014
  Serious: No
  Sender: FDA-Public Use
  Company Number: US-PURDUE-USA-2021-0227435

PATIENT
  Sex: Female

DRUGS (1)
  1. OXYCODONE/ ACETAMINOPHEN TABLETS [Suspect]
     Active Substance: ACETAMINOPHEN\OXYCODONE HYDROCHLORIDE
     Indication: PRODUCT USED FOR UNKNOWN INDICATION
     Dosage: 10/325 MG, UNK
     Route: 048
     Dates: start: 2001

REACTIONS (5)
  - Product physical consistency issue [Unknown]
  - Somnolence [Unknown]
  - Drug ineffective [Unknown]
  - Poor quality sleep [Unknown]
  - Product taste abnormal [Unknown]
